FAERS Safety Report 9687035 (Version 1)
Quarter: 2013Q4

REPORT INFORMATION
  Report Type: Report from Study
  Country: DE (occurrence: DE)
  Receive Date: 20131113
  Receipt Date: 20131113
  Transmission Date: 20140711
  Serious: Yes (Other)
  Sender: FDA-Public Use
  Company Number: DE-B.I. PHARMACEUTICALS,INC./RIDGEFIELD-2013-BI-36609DE

PATIENT
  Age: 76 Year
  Sex: Female
  Weight: 65 kg

DRUGS (2)
  1. PRADAXA [Suspect]
     Dosage: 880 MG
     Route: 048
     Dates: start: 20131106
  2. MORPHIN RETARD 60 [Suspect]
     Dosage: 8 ANZ
     Route: 048
     Dates: start: 20131106

REACTIONS (4)
  - Suicide attempt [Unknown]
  - Vomiting [Unknown]
  - Pain [Unknown]
  - Overdose [Unknown]
